FAERS Safety Report 7909071-9 (Version None)
Quarter: 2011Q4

REPORT INFORMATION
  Report Type: 
  Country: None (occurrence: None)
  Receive Date: 20111111
  Receipt Date: 20111101
  Transmission Date: 20120403
  Serious: Yes (Death, Hospitalization)
  Sender: FDA-Public Use
  Company Number: US-ACTELION-A-US2011-56155

PATIENT

DRUGS (5)
  1. TRACLEER [Suspect]
     Indication: PULMONARY ARTERIAL HYPERTENSION
     Dosage: UNK
     Route: 048
     Dates: start: 20110512
  2. VENTAVIS [Suspect]
     Indication: PULMONARY ARTERIAL HYPERTENSION
     Dosage: UNK
     Route: 055
     Dates: start: 20111025, end: 20111027
  3. COUMADIN [Concomitant]
  4. REVATIO [Concomitant]
  5. CALCIUM CHANNEL BLOCKERS [Concomitant]

REACTIONS (3)
  - MYALGIA [None]
  - PULMONARY FIBROSIS [None]
  - DIZZINESS [None]
